FAERS Safety Report 16958352 (Version 2)
Quarter: 2020Q1

REPORT INFORMATION
  Report Type: Spontaneous
  Country: US (occurrence: US)
  Receive Date: 20191024
  Receipt Date: 20200316
  Transmission Date: 20200409
  Serious: No
  Sender: FDA-Public Use
  Company Number: US-TEVA-2019-US-1125690

PATIENT
  Sex: Male

DRUGS (1)
  1. WARFARIN SODIUM TABLETS [Suspect]
     Active Substance: WARFARIN SODIUM
     Route: 065
     Dates: start: 201910

REACTIONS (4)
  - Product label issue [Unknown]
  - Peripheral swelling [Unknown]
  - Contusion [Unknown]
  - Product dispensing error [Unknown]

NARRATIVE: CASE EVENT DATE: 20191005
